FAERS Safety Report 10336398 (Version 1)
Quarter: 2014Q3

REPORT INFORMATION
  Report Type: Spontaneous
  Country: GB (occurrence: GB)
  Receive Date: 20140723
  Receipt Date: 20140723
  Transmission Date: 20150326
  Serious: Yes (Other)
  Sender: FDA-Public Use
  Company Number: PHHY2014GB087608

PATIENT
  Age: 42 Year
  Sex: Female

DRUGS (5)
  1. PARACETAMOL [Concomitant]
     Active Substance: ACETAMINOPHEN
  2. IBUPROFEN. [Concomitant]
     Active Substance: IBUPROFEN
  3. PROPANOL [Concomitant]
     Active Substance: PROPRANOLOL HYDROCHLORIDE
  4. CLARITHROMYCIN. [Suspect]
     Active Substance: CLARITHROMYCIN
     Indication: INFECTED CYST
     Dosage: 500 MG, BID
     Route: 048
     Dates: start: 20140702
  5. SUMATRIPTAN [Concomitant]
     Active Substance: SUMATRIPTAN

REACTIONS (6)
  - Epistaxis [Not Recovered/Not Resolved]
  - Blood glucose decreased [Not Recovered/Not Resolved]
  - Diarrhoea [Not Recovered/Not Resolved]
  - Fatigue [Not Recovered/Not Resolved]
  - Insomnia [Not Recovered/Not Resolved]
  - Disturbance in attention [Not Recovered/Not Resolved]
